FAERS Safety Report 10270897 (Version 1)
Quarter: 2014Q1

REPORT INFORMATION
  Report Type: Spontaneous
  Country: US (occurrence: None)
  Receive Date: 20140306
  Receipt Date: 20140306
  Transmission Date: 20141002
  Serious: Yes (Other)
  Sender: FDA-Public Use
  Company Number: 163-21880-13082355

PATIENT
  Age: 79 Year
  Sex: Male
  Weight: 83.5 kg

DRUGS (4)
  1. REVLIMID (LENALIDOMIDE) (25 MILLIGRAM, CAPSULES) [Suspect]
     Indication: PLASMA CELL MYELOMA
     Dosage: 25 MG, 14 IN 14 D, PO
     Route: 048
     Dates: start: 20070713
  2. LYRICA (PREGABALIN) (CAPSULES) [Concomitant]
  3. MULTIVITAMINS (MULTIVITAMINS) (TABLETS) [Concomitant]
  4. ASPIRIN (ACETYLSALICYLIC ACID) (ENTERIC-COATED TABLET) [Concomitant]

REACTIONS (1)
  - Thrombosis [None]
